FAERS Safety Report 19925501 (Version 1)
Quarter: 2021Q4

REPORT INFORMATION
  Report Type: Report from Study
  Country: KE (occurrence: KE)
  Receive Date: 20211006
  Receipt Date: 20211006
  Transmission Date: 20220303
  Serious: Yes (Other)
  Sender: FDA-Public Use
  Company Number: KE-NOVARTISPH-NVSC2021KE168515

PATIENT
  Sex: Male
  Weight: 104 kg

DRUGS (10)
  1. SACUBITRIL\VALSARTAN [Suspect]
     Active Substance: SACUBITRIL\VALSARTAN
     Indication: Cardiac failure chronic
     Dosage: 100 MG, BID
     Route: 048
     Dates: start: 2021
  2. BRILINTA [Concomitant]
     Active Substance: TICAGRELOR
     Indication: Product used for unknown indication
     Dosage: 90 MG, BID
     Route: 065
  3. INSPRA [Concomitant]
     Active Substance: EPLERENONE
     Indication: Product used for unknown indication
     Dosage: 25 MG, QD
     Route: 065
  4. ASPIRIN [Concomitant]
     Active Substance: ASPIRIN
     Indication: Product used for unknown indication
     Dosage: 100 MG, QD
     Route: 065
  5. LIPITOR [Concomitant]
     Active Substance: ATORVASTATIN CALCIUM
     Indication: Product used for unknown indication
     Dosage: 80 MG (NOCTE)
     Route: 065
  6. NEXIUM [Concomitant]
     Active Substance: ESOMEPRAZOLE MAGNESIUM
     Indication: Product used for unknown indication
     Dosage: 40 MG, BID
     Route: 065
  7. SODIUM [Concomitant]
     Active Substance: SODIUM
     Indication: Product used for unknown indication
     Dosage: UNK, BID (SLOW NA+2 PO 12/52)
     Route: 048
  8. IVABRADINE [Concomitant]
     Active Substance: IVABRADINE
     Indication: Product used for unknown indication
     Dosage: 5 MG, BID
     Route: 065
  9. CARVEDILOL [Concomitant]
     Active Substance: CARVEDILOL
     Indication: Product used for unknown indication
     Dosage: 12.5 MG, QD
     Route: 065
  10. EMPAGLIFLOZIN [Concomitant]
     Active Substance: EMPAGLIFLOZIN
     Indication: Product used for unknown indication
     Dosage: 10 MG, QD
     Route: 065

REACTIONS (5)
  - Fungal infection [Unknown]
  - Pruritus [Recovered/Resolved]
  - Swelling [Recovered/Resolved]
  - Irritability [Recovered/Resolved]
  - Weight decreased [Recovered/Resolved]

NARRATIVE: CASE EVENT DATE: 20210715
